FAERS Safety Report 9681586 (Version 1)
Quarter: 2013Q4

REPORT INFORMATION
  Report Type: Spontaneous
  Country: US (occurrence: US)
  Receive Date: 20131111
  Receipt Date: 20131111
  Transmission Date: 20140711
  Serious: Yes (Death)
  Sender: FDA-Public Use
  Company Number: US-PFIZER INC-2013318145

PATIENT
  Age: 50 Year
  Sex: Male
  Weight: 117.46 kg

DRUGS (2)
  1. LIPITOR [Suspect]
     Indication: TYPE V HYPERLIPIDAEMIA
     Dosage: 40 MG, 1X/DAY
     Route: 048
     Dates: start: 20110831
  2. LOVAZA [Concomitant]
     Dosage: UNK

REACTIONS (1)
  - Death [Fatal]
